FAERS Safety Report 8848258 (Version 2)
Quarter: 2015Q1

REPORT INFORMATION
  Report Type: Report from Study
  Country: US (occurrence: US)
  Receive Date: 20121018
  Receipt Date: 20150204
  Transmission Date: 20150721
  Serious: Yes (Hospitalization)
  Sender: FDA-Public Use
  Company Number: US-ROCHE-1139618

PATIENT
  Sex: Male
  Weight: 40 kg

DRUGS (5)
  1. PROPRANOLOL [Concomitant]
     Active Substance: PROPRANOLOL\PROPRANOLOL HYDROCHLORIDE
  2. PROTROPIN [Suspect]
     Active Substance: SOMATREM
     Indication: BODY HEIGHT BELOW NORMAL
  3. GLUCAGON. [Concomitant]
     Active Substance: GLUCAGON
  4. HUMATROPE [Concomitant]
     Active Substance: SOMATROPIN
     Indication: PRODUCT USED FOR UNKNOWN INDICATION
     Dosage: 0.50 CC (4.02 MG/CC)
     Route: 058
     Dates: start: 19660223
  5. PROTROPIN [Suspect]
     Active Substance: SOMATREM
     Indication: SICKLE CELL ANAEMIA
     Dosage: 0.3 MG/KG/WEEK
     Route: 058
     Dates: start: 19950609

REACTIONS (2)
  - Pyrexia [Unknown]
  - Pain [Unknown]
